FAERS Safety Report 20098929 (Version 1)
Quarter: 2021Q4

REPORT INFORMATION
  Report Type: Report from Study
  Country: NL (occurrence: NL)
  Receive Date: 20211122
  Receipt Date: 20211122
  Transmission Date: 20220303
  Serious: Yes (Other)
  Sender: FDA-Public Use
  Company Number: NL-MYLANLABS-2021M1085342

PATIENT
  Sex: Female

DRUGS (1)
  1. GLATIRAMER ACETATE [Suspect]
     Active Substance: GLATIRAMER ACETATE
     Indication: Relapsing multiple sclerosis
     Dosage: 40 MILLIGRAM, 3XW
     Route: 058

REACTIONS (2)
  - Facial paralysis [Recovering/Resolving]
  - Depressed mood [Not Recovered/Not Resolved]
